FAERS Safety Report 12540767 (Version 6)
Quarter: 2016Q4

REPORT INFORMATION
  Report Type: Report from Study
  Country: DE (occurrence: DE)
  Receive Date: 20160708
  Receipt Date: 20161027
  Transmission Date: 20170207
  Serious: Yes (Hospitalization)
  Sender: FDA-Public Use
  Company Number: DE-UCBSA-2016024832

PATIENT
  Sex: Female
  Weight: 68 kg

DRUGS (6)
  1. PLACEBO [Suspect]
     Active Substance: UNSPECIFIED INGREDIENT
     Indication: PSORIASIS
     Dosage: 1 ML, EV 2 WEEKS(QOW)
     Route: 058
     Dates: start: 20151028, end: 2016
  2. CALCIUM [Concomitant]
     Active Substance: CALCIUM
     Indication: OSTEOPOROSIS
     Dosage: 1 DF, ONCE DAILY (QD)
     Route: 048
     Dates: start: 1997
  3. POLYHEXANIDE [Concomitant]
     Indication: ULCER
     Dosage: 1 APP, TWICE A DAY
     Route: 061
     Dates: start: 20151222, end: 20160901
  4. IBU LYSIN HEXAL [Concomitant]
     Indication: BACK PAIN
     Dosage: 684 MG, ONCE DAILY (QD)
     Route: 048
     Dates: start: 201412
  5. CERTOLIZUMAB PEGOL [Suspect]
     Active Substance: CERTOLIZUMAB PEGOL
     Indication: PSORIASIS
     Dosage: 1.0 ML, EV 2 WEEKS(QOW)
     Route: 058
     Dates: start: 2016, end: 20160526
  6. TOPISOLON [Concomitant]
     Indication: PSORIASIS
     Dosage: 1 APPLICATION, 2X/DAY (BID); LOCAL
     Dates: start: 20160623, end: 20160702

REACTIONS (1)
  - Erysipelas [Recovered/Resolved]

NARRATIVE: CASE EVENT DATE: 20160604
